FAERS Safety Report 4631068-5 (Version None)
Quarter: 2005Q2

REPORT INFORMATION
  Report Type: 
  Country: None (occurrence: None)
  Receive Date: 20050408
  Receipt Date: 20050331
  Transmission Date: 20051028
  Serious: Yes (Other)
  Sender: FDA-Public Use
  Company Number: BR-ABBOTT-05P-020-0296118-00

PATIENT
  Age: 30 Year
  Sex: Male
  Weight: 67 kg

DRUGS (3)
  1. SYNTHROID [Suspect]
     Indication: DRUG USE FOR UNKNOWN INDICATION
     Route: 048
     Dates: start: 20000101
  2. SYNTHROID [Suspect]
     Dates: start: 19980101, end: 20000101
  3. FENPROPOREX [Concomitant]
     Indication: DRUG USE FOR UNKNOWN INDICATION
     Route: 048
     Dates: start: 20040901

REACTIONS (1)
  - GASTRIC CANCER [None]
